FAERS Safety Report 8975601 (Version 1)
Quarter: 2012Q4

REPORT INFORMATION
  Report Type: 
  Country: US (occurrence: US)
  Receive Date: 20121219
  Receipt Date: 20121219
  Transmission Date: 20130627
  Serious: No
  Sender: FDA-Public Use
  Company Number: US-AMGEN-USASP2012072034

PATIENT
  Age: 76 Year
  Sex: Female

DRUGS (15)
  1. PROLIA [Suspect]
     Indication: OSTEOPOROSIS POSTMENOPAUSAL
     Dosage: UNK
     Dates: start: 201103
  2. CRANBERRY                          /01512301/ [Concomitant]
     Dosage: UNK UNK, qd
  3. XANAX [Concomitant]
     Dosage: 0.25 mg, bid
  4. FOLIC ACID [Concomitant]
     Dosage: 1 mg, qd
  5. THEOPHYLLINE [Concomitant]
     Indication: BRONCHITIS CHRONIC
     Dosage: UNK UNK, qd
  6. DOXEPIN [Concomitant]
     Dosage: 10 mg, qhs
  7. CELEBREX [Concomitant]
     Dosage: UNK
     Dates: end: 2012
  8. KLONOPIN [Concomitant]
     Dosage: 1 mg, bid
  9. VICODIN [Concomitant]
     Dosage: UNK UNK, qd
  10. VICODIN [Concomitant]
     Dosage: UNK, bid
  11. CYMBALTA [Concomitant]
     Indication: DEPRESSION
     Dosage: 30 mg, qd
  12. BONE UP [Concomitant]
     Dosage: 3000 mg, bid
  13. CENTRUM                            /07499601/ [Concomitant]
     Dosage: UNK
  14. CALTRATE WITH VITAMIN D [Concomitant]
     Dosage: 600 mg, bid
  15. LOSARTAN [Concomitant]

REACTIONS (6)
  - Nocturia [Unknown]
  - Urinary incontinence [Unknown]
  - Blood urine present [Unknown]
  - Urethritis [Recovered/Resolved]
  - Dysuria [Unknown]
  - Constipation [Recovered/Resolved]
